FAERS Safety Report 9277867 (Version 1)
Quarter: 2013Q2

REPORT INFORMATION
  Report Type: Spontaneous
  Country: US (occurrence: None)
  Receive Date: 20130503
  Receipt Date: 20130503
  Transmission Date: 20140414
  Serious: Yes (Hospitalization)
  Sender: FDA-Public Use
  Company Number: None

PATIENT
  Age: 64 Year
  Sex: Male

DRUGS (3)
  1. INCIVEK [Suspect]
     Indication: HEPATITIS C
     Route: 048
     Dates: start: 20130208, end: 20130429
  2. PEGASYS [Suspect]
     Indication: HEPATITIS C
     Dates: start: 20130208, end: 20130429
  3. RIBASPHERE [Concomitant]

REACTIONS (2)
  - Pneumonia [None]
  - Blood count abnormal [None]
